FAERS Safety Report 5846110-3 (Version None)
Quarter: 2008Q3

REPORT INFORMATION
  Report Type: 
  Country: None (occurrence: None)
  Receive Date: 20080814
  Receipt Date: 20080804
  Transmission Date: 20090109
  Serious: Yes (Other)
  Sender: FDA-Public Use
  Company Number: NL-PFIZER INC-2008065377

PATIENT
  Sex: Female

DRUGS (3)
  1. DEPO-PROVERA SUSPENSION/INJ [Suspect]
     Indication: CONTRACEPTION
     Route: 030
  2. DEPAKENE [Interacting]
     Indication: BIPOLAR DISORDER
     Route: 048
     Dates: start: 20050728, end: 20051208
  3. PAROXETINE HCL [Concomitant]
     Dosage: DAILY DOSE:20MG
     Route: 048

REACTIONS (3)
  - DRUG INEFFECTIVE [None]
  - DRUG INTERACTION [None]
  - UNINTENDED PREGNANCY [None]
